FAERS Safety Report 15265592 (Version 2)
Quarter: 2018Q3

REPORT INFORMATION
  Report Type: Spontaneous
  Country: PT (occurrence: PT)
  Receive Date: 20180810
  Receipt Date: 20180819
  Transmission Date: 20181010
  Serious: Yes (Other)
  Sender: FDA-Public Use
  Company Number: PT-SHIRE-PT201738037

PATIENT

DRUGS (20)
  1. ELTROMBOPAG [Suspect]
     Active Substance: ELTROMBOPAG
     Dosage: 12.5 MG, 1X/DAY:QD
     Route: 048
     Dates: start: 20170804, end: 20170814
  2. MISOPROSTOL. [Suspect]
     Active Substance: MISOPROSTOL
     Indication: PRODUCT USED FOR UNKNOWN INDICATION
     Dosage: UNK
     Route: 065
  3. PREDNISOLONE. [Suspect]
     Active Substance: PREDNISOLONE
     Dosage: 160 MG, 1X/DAY:QD
     Route: 048
     Dates: start: 20170711
  4. ENOXAPARIN [Suspect]
     Active Substance: ENOXAPARIN
     Indication: IMMUNE THROMBOCYTOPENIC PURPURA
     Dosage: 120 MG, 1X/DAY:QD
     Route: 065
  5. ENOXAPARIN [Suspect]
     Active Substance: ENOXAPARIN
     Dosage: 90 MG, 1X/DAY:QD
     Route: 065
  6. DEXAMETHASONE. [Suspect]
     Active Substance: DEXAMETHASONE
     Indication: IMMUNE THROMBOCYTOPENIC PURPURA
     Dosage: 6 MG, 1X/DAY:QD
     Route: 042
     Dates: start: 20170711, end: 20170712
  7. PREDNISOLONE. [Suspect]
     Active Substance: PREDNISOLONE
     Dosage: 120 MG, 1X/DAY:QD
     Route: 048
     Dates: start: 20170725
  8. PREDNISOLONE. [Suspect]
     Active Substance: PREDNISOLONE
     Dosage: 40 MG, 1X/DAY:QD
     Route: 048
     Dates: start: 20170808, end: 20170816
  9. ENOXAPARIN [Suspect]
     Active Substance: ENOXAPARIN
     Dosage: 80 MG, 1X/DAY:QD
  10. MISOPROSTOL. [Suspect]
     Active Substance: MISOPROSTOL
     Indication: PRE-ECLAMPSIA
  11. KIOVIG [Suspect]
     Active Substance: HUMAN IMMUNOGLOBULIN G
     Indication: IMMUNE THROMBOCYTOPENIC PURPURA
     Dosage: UNK (DOSE: 1 G/KG)
     Route: 042
     Dates: start: 20170704, end: 20170705
  12. ELTROMBOPAG [Suspect]
     Active Substance: ELTROMBOPAG
     Dosage: 25 MG, 1X/DAY:QD
     Route: 048
     Dates: start: 20170731
  13. PREDNISOLONE. [Suspect]
     Active Substance: PREDNISOLONE
     Dosage: 80 MG, 1X/DAY:QD
     Route: 048
     Dates: start: 20170731
  14. AZATHIOPRINE. [Suspect]
     Active Substance: AZATHIOPRINE
     Indication: IMMUNE THROMBOCYTOPENIC PURPURA
     Dosage: 150 MG, QD
     Route: 048
     Dates: start: 20170712, end: 20170731
  15. PREDNISOLONE. [Suspect]
     Active Substance: PREDNISOLONE
     Dosage: 80 MG, 1X/DAY:QD
     Route: 048
     Dates: start: 20170703
  16. METHYLPREDNISOLONE. [Suspect]
     Active Substance: METHYLPREDNISOLONE
     Indication: IMMUNE THROMBOCYTOPENIC PURPURA
     Dosage: 90 MG, 1X/DAY:QD
     Route: 065
  17. PANTOPRAZOLE [Suspect]
     Active Substance: PANTOPRAZOLE
     Indication: PROPHYLAXIS
     Dosage: 20 MG, 1X/DAY:QD
     Route: 048
     Dates: start: 20170703
  18. PREDNISOLONE. [Suspect]
     Active Substance: PREDNISOLONE
     Indication: IMMUNE THROMBOCYTOPENIC PURPURA
     Dosage: 120 MG, 1X/DAY:QD
     Route: 048
     Dates: start: 20170707
  19. NIFEDIPINE. [Suspect]
     Active Substance: NIFEDIPINE
     Indication: BLOOD PRESSURE MEASUREMENT
     Dosage: UNK
     Route: 065
  20. ELTROMBOPAG [Suspect]
     Active Substance: ELTROMBOPAG
     Indication: IMMUNE THROMBOCYTOPENIC PURPURA
     Dosage: 50 MG, 1X/DAY:QD
     Route: 048
     Dates: start: 20170718

REACTIONS (7)
  - Premature delivery [Unknown]
  - Anaemia of pregnancy [Unknown]
  - Infection [Unknown]
  - Thrombocytopenia [Unknown]
  - Haematuria [Unknown]
  - Maternal exposure during pregnancy [Unknown]
  - Hypertension [Unknown]
